FAERS Safety Report 5759543-0 (Version None)
Quarter: 2008Q2

REPORT INFORMATION
  Report Type: 
  Country: None (occurrence: None)
  Receive Date: 20080604
  Receipt Date: 20080604
  Transmission Date: 20081010
  Serious: Yes (Other)
  Sender: FDA-Public Use
  Company Number: None

PATIENT
  Sex: Female

DRUGS (1)
  1. CHANTIX [Suspect]
     Indication: SMOKING CESSATION THERAPY
     Dosage: 0.25MG DAILY PO
     Route: 048
     Dates: start: 20080520, end: 20080530

REACTIONS (2)
  - EYE SWELLING [None]
  - MIOSIS [None]
